FAERS Safety Report 24179066 (Version 1)
Quarter: 2024Q3

REPORT INFORMATION
  Report Type: Spontaneous
  Country: PT (occurrence: PT)
  Receive Date: 20240806
  Receipt Date: 20240806
  Transmission Date: 20241016
  Serious: Yes (Hospitalization, Other)
  Sender: NORDIC PHARMA
  Company Number: PT-ANGELINI PHARMA PORTUGAL-2024-035130

PATIENT
  Age: 70 Year
  Sex: Male

DRUGS (2)
  1. METHOTREXATE [Suspect]
     Active Substance: METHOTREXATE
     Indication: Rheumatoid arthritis
     Route: 065
  2. PREDNISOLONE [Concomitant]
     Active Substance: PREDNISOLONE
     Indication: Rheumatoid arthritis
     Route: 065

REACTIONS (5)
  - Glomerulonephritis [Recovered/Resolved]
  - Renal failure [Recovered/Resolved]
  - Pneumonia [Unknown]
  - Sepsis [Unknown]
  - Infection in an immunocompromised host [Unknown]
